FAERS Safety Report 5531766-5 (Version None)
Quarter: 2007Q4

REPORT INFORMATION
  Report Type: 
  Country: None (occurrence: None)
  Receive Date: 20071203
  Receipt Date: 20071128
  Transmission Date: 20080405
  Serious: Yes (Death, Other)
  Sender: FDA-Public Use
  Company Number: CN-ASTRAZENECA-2007AP07547

PATIENT
  Age: 83 Year
  Sex: Female

DRUGS (3)
  1. IRESSA [Suspect]
     Indication: LUNG ADENOCARCINOMA
     Route: 048
     Dates: start: 20071010, end: 20071115
  2. LENTINAN [Suspect]
     Indication: LUNG ADENOCARCINOMA
     Route: 034
     Dates: start: 20071001
  3. UNSPECIFIED [Suspect]
     Indication: LUNG ADENOCARCINOMA
     Route: 048
     Dates: start: 20071001

REACTIONS (4)
  - COMA [None]
  - DEATH [None]
  - DYSPNOEA [None]
  - PYREXIA [None]
